FAERS Safety Report 4863547-X (Version None)
Quarter: 2005Q4

REPORT INFORMATION
  Report Type: 
  Country: None (occurrence: None)
  Receive Date: 20051222
  Receipt Date: 20050419
  Transmission Date: 20060501
  Serious: No
  Sender: FDA-Public Use
  Company Number: US-GLAXOSMITHKLINE-A0554819A

PATIENT
  Age: 84 Year
  Sex: Female

DRUGS (7)
  1. FLONASE [Suspect]
     Indication: SINUS CONGESTION
     Dosage: 200MCG PER DAY
     Route: 045
     Dates: start: 20050416, end: 20050416
  2. LASIX [Concomitant]
  3. LIBRIUM [Concomitant]
  4. TYLENOL [Concomitant]
  5. VITAMINS [Concomitant]
  6. NITROGLYCERIN [Concomitant]
  7. NITROGLYCERIN [Concomitant]
     Route: 048

REACTIONS (4)
  - BLOOD PRESSURE INCREASED [None]
  - DIZZINESS [None]
  - MALAISE [None]
  - VISION BLURRED [None]
